FAERS Safety Report 8476874-4 (Version None)
Quarter: 2012Q2

REPORT INFORMATION
  Report Type: 
  Country: None (occurrence: None)
  Receive Date: 20120629
  Receipt Date: 20120620
  Transmission Date: 20120825
  Serious: Yes (Hospitalization)
  Sender: FDA-Public Use
  Company Number: US-BIOGENIDEC-2012BI022013

PATIENT
  Sex: Female

DRUGS (3)
  1. AVONEX [Suspect]
     Indication: MULTIPLE SCLEROSIS
     Route: 030
     Dates: start: 20100622, end: 20110708
  2. AVONEX [Suspect]
     Route: 030
     Dates: start: 20120522
  3. MEDICATION NOS [Concomitant]
     Indication: ADRENAL INSUFFICIENCY

REACTIONS (14)
  - HYPOTENSION [None]
  - HYPOTHALAMO-PITUITARY DISORDER [None]
  - ANXIETY [None]
  - GAIT DISTURBANCE [None]
  - SYNCOPE [None]
  - MULTIPLE SCLEROSIS [None]
  - OEDEMA PERIPHERAL [None]
  - AMNESIA [None]
  - MUSCLE SPASMS [None]
  - DEPRESSION [None]
  - BACK PAIN [None]
  - WEIGHT INCREASED [None]
  - MULTIPLE SCLEROSIS RELAPSE [None]
  - INTERVERTEBRAL DISC PROTRUSION [None]
